FAERS Safety Report 10159170 (Version 1)
Quarter: 2014Q2

REPORT INFORMATION
  Report Type: Spontaneous
  Country: US (occurrence: US)
  Receive Date: 20140508
  Receipt Date: 20140508
  Transmission Date: 20141212
  Serious: Yes (Other)
  Sender: FDA-Public Use
  Company Number: US-RB-065536-14

PATIENT
  Age: 69 Year
  Sex: Female

DRUGS (2)
  1. DELSYM COUGH PLUS CHEST CONGESTION DM [Suspect]
     Indication: COUGH
     Dosage: DRINKS OUT OF THE BOTTLE EVERY 4 HOURS, TOOK LAST ON 29-APR-2014.
     Route: 048
     Dates: start: 20140425
  2. DELSYM COUGH PLUS CHEST CONGESTION DM [Suspect]
     Indication: RESPIRATORY TRACT CONGESTION
     Dosage: DRINKS OUT OF THE BOTTLE EVERY 4 HOURS, TOOK LAST ON 29-APR-2014.
     Route: 048
     Dates: start: 20140425

REACTIONS (3)
  - Anuria [Not Recovered/Not Resolved]
  - Drug ineffective [Not Recovered/Not Resolved]
  - Wrong technique in drug usage process [Not Recovered/Not Resolved]
